FAERS Safety Report 15337309 (Version 1)
Quarter: 2018Q3

REPORT INFORMATION
  Report Type: Spontaneous
  Country: AU (occurrence: AU)
  Receive Date: 20180831
  Receipt Date: 20180831
  Transmission Date: 20181010
  Serious: Yes (Hospitalization)
  Sender: FDA-Public Use
  Company Number: AU-EDENBRIDGE PHARMACEUTICALS, LLC-AU-2018EDE000262

PATIENT
  Age: 79 Year
  Sex: Male

DRUGS (7)
  1. DOXORUBICIN [Suspect]
     Active Substance: DOXORUBICIN
     Indication: DIFFUSE LARGE B-CELL LYMPHOMA STAGE IV
     Dosage: 25 MG/M2, 21?DAY CYCLE (ON DAY 1)
     Route: 042
  2. VINCRISTINE [Suspect]
     Active Substance: VINCRISTINE
     Indication: DIFFUSE LARGE B-CELL LYMPHOMA STAGE IV
     Dosage: 1 MG, 21?DAY CYCLE (ON DAY 1)
     Route: 042
  3. ISONIAZID. [Concomitant]
     Active Substance: ISONIAZID
     Indication: MYCOBACTERIAL INFECTION
     Dosage: 300 MG, QD
     Route: 048
  4. PREDNISOLONE SODIUM PHOSPHATE. [Suspect]
     Active Substance: PREDNISOLONE SODIUM PHOSPHATE
     Indication: DIFFUSE LARGE B-CELL LYMPHOMA STAGE IV
     Dosage: 40 MG/M2, 21?DAY CYCLE (ON DAYS 1?5)
  5. RITUXIMAB. [Suspect]
     Active Substance: RITUXIMAB
     Indication: DIFFUSE LARGE B-CELL LYMPHOMA STAGE IV
     Dosage: 375 MG/M2, 21?DAY CYCLE (ON DAY 1)
     Route: 042
  6. CYCLOPHOSPHAMIDE. [Suspect]
     Active Substance: CYCLOPHOSPHAMIDE
     Indication: DIFFUSE LARGE B-CELL LYMPHOMA STAGE IV
     Dosage: 400 MG/M2, 21?DAY CYCLE (ON DAY 1)
     Route: 042
  7. IBRUTINIB [Suspect]
     Active Substance: IBRUTINIB
     Indication: DIFFUSE LARGE B-CELL LYMPHOMA STAGE IV
     Dosage: 560 MG, QD
     Route: 048

REACTIONS (3)
  - Cryptococcosis [Unknown]
  - Empyema [Unknown]
  - Candida infection [Unknown]
